FAERS Safety Report 6328973-0 (Version None)
Quarter: 2009Q3

REPORT INFORMATION
  Report Type: 
  Country: None (occurrence: None)
  Receive Date: 20090826
  Receipt Date: 20090825
  Transmission Date: 20100115
  Serious: Yes (Other)
  Sender: FDA-Public Use
  Company Number: DE-JNJFOC-20090804506

PATIENT
  Age: 48 Year
  Sex: Male

DRUGS (3)
  1. PARACETAMOL [Suspect]
  2. PARACETAMOL [Suspect]
     Indication: OTITIS MEDIA
  3. AMOXICILLIN [Interacting]
     Indication: OTITIS MEDIA

REACTIONS (3)
  - ACUTE GENERALISED EXANTHEMATOUS PUSTULOSIS [None]
  - DRUG INTERACTION [None]
  - HEPATOMEGALY [None]
